FAERS Safety Report 5167162-2 (Version None)
Quarter: 2006Q4

REPORT INFORMATION
  Report Type: 
  Country: None (occurrence: None)
  Receive Date: 20061129
  Receipt Date: 20061115
  Transmission Date: 20070319
  Serious: Yes (Life-Threatening, Hospitalization, Other)
  Sender: FDA-Public Use
  Company Number: 2006AP001009

PATIENT
  Age: 53 Year
  Sex: Male

DRUGS (3)
  1. FLUOXETINE HCL [Suspect]
     Indication: DEPRESSION
     Dosage: 80 MG; QD; PO; SEE IMAGE
     Route: 048
  2. OLANZAPINE [Suspect]
     Indication: DEPRESSION
     Dosage: 5 MG; QD; SEE IMAGE
  3. DIAZEPAM [Concomitant]

REACTIONS (7)
  - AMNESIA [None]
  - DISORIENTATION [None]
  - DISTURBANCE IN ATTENTION [None]
  - DRUG INTERACTION [None]
  - MYOCLONUS [None]
  - SEROTONIN SYNDROME [None]
  - SUICIDAL IDEATION [None]
